FAERS Safety Report 15007136 (Version 1)
Quarter: 2018Q2

REPORT INFORMATION
  Report Type: Spontaneous
  Country: US (occurrence: US)
  Receive Date: 20180521
  Receipt Date: 20180521
  Transmission Date: 20180711
  Serious: No
  Sender: FDA-Public Use
  Company Number: None

PATIENT
  Age: 54 Year
  Sex: Male

DRUGS (9)
  1. ASPIRIN. [Concomitant]
     Active Substance: ASPIRIN
  2. MIDODRINE [Concomitant]
     Active Substance: MIDODRINE
  3. SIMVASTATIN. [Suspect]
     Active Substance: SIMVASTATIN
     Indication: HYPERLIPIDAEMIA
     Route: 048
  4. CALCIUM ACETATE. [Concomitant]
     Active Substance: CALCIUM ACETATE
  5. INSULIN LISPRO [Concomitant]
     Active Substance: INSULIN LISPRO
  6. TRIAMCINOLONE CREAM [Concomitant]
     Active Substance: TRIAMCINOLONE
  7. CEFAZOLIN [Concomitant]
     Active Substance: CEFAZOLIN
  8. CHOLESTYRAMINE. [Concomitant]
     Active Substance: CHOLESTYRAMINE
  9. INSULIN GLARGINR [Concomitant]

REACTIONS (1)
  - Skin discolouration [None]

NARRATIVE: CASE EVENT DATE: 20180221
